FAERS Safety Report 8830134 (Version 2)
Quarter: 2012Q4

REPORT INFORMATION
  Report Type: Report from Study
  Country: GB (occurrence: GB)
  Receive Date: 20121008
  Receipt Date: 20121015
  Transmission Date: 20130627
  Serious: Yes (Other)
  Sender: FDA-Public Use
  Company Number: GB-CELGENEUS-167-21880-12093263

PATIENT
  Age: 62 Year
  Sex: Male
  Weight: 91 kg

DRUGS (6)
  1. REVLIMID [Suspect]
     Indication: MYELOMA
     Dosage: 25 Milligram
     Route: 048
     Dates: start: 20120502
  2. REVLIMID [Suspect]
     Dosage: 25 Milligram
     Route: 048
     Dates: start: 20120912
  3. CYCLOPHOSPHAMIDE [Suspect]
     Indication: MYELOMA
     Route: 048
     Dates: start: 20120502
  4. CYCLOPHOSPHAMIDE [Suspect]
     Route: 048
     Dates: start: 20120905
  5. DEXAMETHASONE [Suspect]
     Indication: MYELOMA
     Dosage: 40 Milligram
     Route: 048
     Dates: start: 20120502
  6. DEXAMETHASONE [Suspect]
     Dosage: 40 Milligram
     Route: 048
     Dates: start: 20120905

REACTIONS (1)
  - Prostate cancer [Recovered/Resolved with Sequelae]
